FAERS Safety Report 4892241-4 (Version None)
Quarter: 2006Q1

REPORT INFORMATION
  Report Type: 
  Country: None (occurrence: None)
  Receive Date: 20060123
  Receipt Date: 20060110
  Transmission Date: 20060701
  Serious: Yes (Hospitalization)
  Sender: FDA-Public Use
  Company Number: 2006005551

PATIENT
  Age: 76 Year
  Sex: Male

DRUGS (3)
  1. VFEND [Suspect]
     Indication: ASPERGILLOMA
     Dosage: ORAL
     Route: 048
  2. HALCION [Suspect]
     Indication: ILL-DEFINED DISORDER
     Dosage: ORAL
     Route: 048
  3. LENDORM [Concomitant]

REACTIONS (3)
  - BLOOD POTASSIUM DECREASED [None]
  - DIZZINESS [None]
  - PYREXIA [None]
